FAERS Safety Report 12629392 (Version 1)
Quarter: 2016Q3

REPORT INFORMATION
  Report Type: Report from Study
  Country: US (occurrence: US)
  Receive Date: 20160808
  Receipt Date: 20160808
  Transmission Date: 20161109
  Serious: Yes (Other)
  Sender: FDA-Public Use
  Company Number: US-MALLINCKRODT-T201603332

PATIENT
  Age: 46 Year
  Sex: Female

DRUGS (1)
  1. REPOSITORY CORTICOTROPIN INJECTION [Suspect]
     Active Substance: CORTICOTROPIN
     Indication: MULTIPLE SCLEROSIS
     Dosage: UNKNOWN
     Route: 065
     Dates: start: 201208

REACTIONS (5)
  - Concussion [Unknown]
  - Wound [Unknown]
  - Fall [Unknown]
  - Multiple sclerosis relapse [Unknown]
  - Head injury [Unknown]

NARRATIVE: CASE EVENT DATE: 201607
